FAERS Safety Report 5869015-0 (Version None)
Quarter: 2008Q3

REPORT INFORMATION
  Report Type: 
  Country: None (occurrence: None)
  Receive Date: 20080903
  Receipt Date: 20080826
  Transmission Date: 20090109
  Serious: Yes (Death, Hospitalization)
  Sender: FDA-Public Use
  Company Number: A0744459A

PATIENT
  Age: 93 Year
  Sex: Male

DRUGS (2)
  1. ADVAIR DISKUS 100/50 [Suspect]
     Indication: PULMONARY HYPERTENSION
     Route: 055
     Dates: start: 20080201
  2. FLOMAX [Concomitant]

REACTIONS (1)
  - RESPIRATORY FAILURE [None]
